FAERS Safety Report 7835433-4 (Version None)
Quarter: 2011Q4

REPORT INFORMATION
  Report Type: 
  Country: None (occurrence: None)
  Receive Date: 20111024
  Receipt Date: 20111014
  Transmission Date: 20120403
  Serious: Yes (Death, Life-Threatening, Hospitalization)
  Sender: FDA-Public Use
  Company Number: JP-AMGEN-JPNCT2011032470

PATIENT
  Age: 81 Year
  Sex: Male
  Weight: 57 kg

DRUGS (18)
  1. GENTAMICIN SULFATE [Concomitant]
     Dosage: UNK
     Route: 062
  2. LANTUS [Concomitant]
     Dosage: UNK
     Route: 042
  3. PANITUMUMAB [Suspect]
     Indication: COLON CANCER
     Dosage: 6 MG/KG, Q2WK
     Route: 041
     Dates: start: 20100804, end: 20101005
  4. AMARYL [Concomitant]
     Route: 048
  5. THEO-DUR [Concomitant]
     Indication: EMPHYSEMA
     Route: 048
  6. MINOCYCLINE HCL [Concomitant]
     Route: 048
  7. HOKUNALIN [Concomitant]
     Indication: EMPHYSEMA
     Route: 062
  8. PANITUMUMAB [Suspect]
     Dosage: 6 MG/KG, Q2WK
     Route: 041
     Dates: start: 20101208, end: 20110315
  9. LEVOLEUCOVORIN CALCIUM [Concomitant]
     Indication: COLORECTAL CANCER
     Dosage: 150 MG, UNK
     Route: 041
     Dates: start: 20110412, end: 20110606
  10. ALLEGRA [Concomitant]
     Route: 048
  11. ANTEBATE [Concomitant]
     Dosage: UNK
     Route: 062
  12. SALMETEROL XINAFOATE [Concomitant]
     Route: 055
  13. LOXONIN [Concomitant]
     Route: 048
  14. FENTOS [Concomitant]
     Route: 062
     Dates: start: 20110512
  15. PANITUMUMAB [Suspect]
     Dosage: 6 MG/KG, Q2WK
     Route: 041
     Dates: start: 20110412, end: 20110606
  16. CETUXIMAB [Suspect]
     Indication: COLORECTAL CANCER
     Dosage: UNK
     Route: 041
     Dates: start: 20090601, end: 20100701
  17. FLUOROURACIL [Concomitant]
     Indication: COLORECTAL CANCER
     Dosage: 1000 MG, UNK
     Route: 041
     Dates: start: 20110412, end: 20110606
  18. LAMISIL [Concomitant]
     Route: 048
     Dates: end: 20110214

REACTIONS (15)
  - DISSEMINATED INTRAVASCULAR COAGULATION [None]
  - DERMATITIS ACNEIFORM [None]
  - PULMONARY OEDEMA [None]
  - TRICUSPID VALVE INCOMPETENCE [None]
  - RENAL CYST [None]
  - EMPHYSEMA [None]
  - PARONYCHIA [None]
  - INTERSTITIAL LUNG DISEASE [None]
  - SPUTUM CULTURE POSITIVE [None]
  - COLON CANCER [None]
  - HYPOMAGNESAEMIA [None]
  - CANDIDIASIS [None]
  - LYMPHANGIOSIS CARCINOMATOSA [None]
  - PLEURAL EFFUSION [None]
  - CONDITION AGGRAVATED [None]
